FAERS Safety Report 8972331 (Version 2)
Quarter: 2013Q1

REPORT INFORMATION
  Report Type: Report from Study
  Country: US (occurrence: US)
  Receive Date: 20121218
  Receipt Date: 20130312
  Transmission Date: 20140127
  Serious: Yes (Hospitalization)
  Sender: FDA-Public Use
  Company Number: US-ABBOTT-12P-163-1020891-00

PATIENT
  Sex: Female
  Weight: 51.3 kg

DRUGS (5)
  1. HUMIRA [Suspect]
     Indication: CROHN^S DISEASE
     Dates: start: 2011, end: 201206
  2. HUMIRA [Suspect]
     Dates: start: 201209
  3. XANAX [Concomitant]
     Indication: PRODUCT USED FOR UNKNOWN INDICATION
  4. ZOLOFT [Concomitant]
     Indication: PRODUCT USED FOR UNKNOWN INDICATION
  5. PREDNISONE [Concomitant]
     Indication: PRODUCT USED FOR UNKNOWN INDICATION
     Dates: start: 2007

REACTIONS (3)
  - Small intestinal obstruction [Recovered/Resolved]
  - Migraine [Not Recovered/Not Resolved]
  - Fungal skin infection [Not Recovered/Not Resolved]
